FAERS Safety Report 10191471 (Version 3)
Quarter: 2014Q2

REPORT INFORMATION
  Report Type: Spontaneous
  Country: JP (occurrence: JP)
  Receive Date: 20140523
  Receipt Date: 20140620
  Transmission Date: 20141212
  Serious: Yes (Other)
  Sender: FDA-Public Use
  Company Number: JP-ELI_LILLY_AND_COMPANY-JP201405006583

PATIENT
  Age: 85 Year
  Sex: Female

DRUGS (4)
  1. FORTEO [Suspect]
     Indication: OSTEOPOROSIS
     Dosage: 20 UG, QD
     Route: 058
     Dates: start: 201402, end: 20140407
  2. AMLODIN [Concomitant]
     Route: 048
  3. GASTER                             /00706001/ [Concomitant]
     Route: 048
  4. MUCOSTA [Concomitant]
     Route: 048

REACTIONS (4)
  - Liver disorder [Recovering/Resolving]
  - Decreased appetite [Recovered/Resolved]
  - Gastrointestinal disorder [Recovering/Resolving]
  - Nausea [Recovered/Resolved]
